FAERS Safety Report 8596391-0 (Version None)
Quarter: 2012Q3

REPORT INFORMATION
  Report Type: 
  Country: None (occurrence: None)
  Receive Date: 20120815
  Receipt Date: 20120810
  Transmission Date: 20120928
  Serious: Yes (Hospitalization, Other)
  Sender: FDA-Public Use
  Company Number: IE-PFIZER INC-2012196758

PATIENT
  Age: 75 Year
  Sex: Male

DRUGS (9)
  1. AMOXICILLIN AND CLAVULANATE POTASSIUM [Suspect]
     Dosage: UNK
     Route: 048
     Dates: start: 20120601
  2. JANUVIA [Concomitant]
     Dosage: 100 MG, 1X/DAY
  3. COVERSYL PLUS [Concomitant]
     Dosage: 5/1.25 ONCE DAILY
  4. MACRODANTIN [Concomitant]
     Dosage: UNK
  5. ASPIRIN [Concomitant]
     Dosage: 75 MG, 1X/DAY
  6. LIPITOR [Suspect]
     Indication: CEREBROVASCULAR ACCIDENT
     Dosage: 10 MG, UNK
     Route: 048
  7. RASILEZ [Concomitant]
     Dosage: 150 MG, 1X/DAY
  8. ARICEPT [Concomitant]
     Dosage: 10 MG, 1X/DAY
  9. LEVOTHYROXINE SODIUM [Concomitant]
     Dosage: 25 MG, 1X/DAY

REACTIONS (2)
  - JAUNDICE CHOLESTATIC [None]
  - HEPATORENAL SYNDROME [None]
